FAERS Safety Report 16836768 (Version 1)
Quarter: 2019Q3

REPORT INFORMATION
  Report Type: Report from Study
  Country: US (occurrence: US)
  Receive Date: 20190922
  Receipt Date: 20190922
  Transmission Date: 20191005
  Serious: Yes (Hospitalization)
  Sender: FDA-Public Use
  Company Number: US-BEH-2019107130

PATIENT
  Age: 53 Year
  Sex: Female
  Weight: 65.31 kg

DRUGS (2)
  1. SET, I.V. FLUID TRANSFER/ NEEDLE, HYPODERMIC, SINGLE LUMEN [Suspect]
     Active Substance: .ALPHA.1-PROTEINASE INHIBITOR HUMAN
     Dosage: 4 VIALS
     Route: 042
     Dates: start: 20190821
  2. SET, I.V. FLUID TRANSFER/ NEEDLE, HYPODERMIC, SINGLE LUMEN [Suspect]
     Active Substance: .ALPHA.1-PROTEINASE INHIBITOR HUMAN
     Indication: ALPHA-1 ANTI-TRYPSIN DEFICIENCY
     Dosage: 4 VIALS
     Route: 042
     Dates: start: 20100701

REACTIONS (1)
  - Lung transplant [Recovering/Resolving]

NARRATIVE: CASE EVENT DATE: 20190827
